FAERS Safety Report 20928937 (Version 2)
Quarter: 2022Q2

REPORT INFORMATION
  Report Type: Spontaneous
  Country: US (occurrence: US)
  Receive Date: 20220608
  Receipt Date: 20220622
  Transmission Date: 20220721
  Serious: No
  Sender: FDA-Public Use
  Company Number: US-BRISTOL-MYERS SQUIBB COMPANY-2022-040164

PATIENT
  Age: 77 Year
  Sex: Male

DRUGS (1)
  1. POMALYST [Suspect]
     Active Substance: POMALIDOMIDE
     Indication: Neoplasm malignant
     Dosage: FREQ - TAKE 1 CAPSULE BY MOUTH ON MONDAY,WEDNESDAY,FRIDAY ON DAYS 1-21 OF A 28 DAY CYCLE.
     Route: 048
     Dates: start: 20150526

REACTIONS (2)
  - Muscle spasms [Unknown]
  - Intentional product use issue [Unknown]
